FAERS Safety Report 22161533 (Version 5)
Quarter: 2023Q2

REPORT INFORMATION
  Report Type: Spontaneous
  Country: CA (occurrence: CA)
  Receive Date: 20230331
  Receipt Date: 20230531
  Transmission Date: 20230722
  Serious: Yes (Other)
  Sender: FDA-Public Use
  Company Number: CA-PFIZER INC-PV202300007429

PATIENT
  Age: 40 Year
  Sex: Female
  Weight: 64 kg

DRUGS (5)
  1. ZIRABEV [Suspect]
     Active Substance: BEVACIZUMAB-BVZR
     Dosage: 320 MG
     Dates: start: 20230111
  2. ZIRABEV [Suspect]
     Active Substance: BEVACIZUMAB-BVZR
     Dosage: 320 MG
     Dates: start: 20230125
  3. ZIRABEV [Suspect]
     Active Substance: BEVACIZUMAB-BVZR
     Dosage: 320 MG
     Dates: start: 20230328
  4. ZIRABEV [Suspect]
     Active Substance: BEVACIZUMAB-BVZR
     Dosage: 320 MG
     Dates: start: 20230411
  5. ZIRABEV [Suspect]
     Active Substance: BEVACIZUMAB-BVZR
     Dosage: 320 MG
     Dates: start: 20230509

REACTIONS (6)
  - Haemoglobin decreased [Unknown]
  - Blood pressure diastolic decreased [Recovered/Resolved]
  - Somnolence [Not Recovered/Not Resolved]
  - Blood pressure fluctuation [Unknown]
  - Body temperature increased [Unknown]
  - Respiratory syncytial virus infection [Unknown]

NARRATIVE: CASE EVENT DATE: 20230101
